FAERS Safety Report 5583330-X (Version None)
Quarter: 2008Q1

REPORT INFORMATION
  Report Type: 
  Country: None (occurrence: None)
  Receive Date: 20080107
  Receipt Date: 20071227
  Transmission Date: 20080703
  Serious: Yes (Other)
  Sender: FDA-Public Use
  Company Number: US-PFIZER INC-2008000769

PATIENT
  Sex: Female
  Weight: 95.454 kg

DRUGS (4)
  1. CHANTIX [Suspect]
     Indication: SMOKING CESSATION THERAPY
     Dates: start: 20071130, end: 20071209
  2. ACIPHEX [Concomitant]
  3. ANTIDEPRESSANTS [Concomitant]
  4. ALL OTHER THERAPEUTIC PRODUCTS [Concomitant]

REACTIONS (4)
  - BLADDER REPAIR [None]
  - FEELING ABNORMAL [None]
  - HEADACHE [None]
  - VOMITING PROJECTILE [None]
